FAERS Safety Report 26068990 (Version 2)
Quarter: 2025Q4

REPORT INFORMATION
  Report Type: Spontaneous
  Country: US (occurrence: US)
  Receive Date: 20251120
  Receipt Date: 20251212
  Transmission Date: 20260117
  Serious: No
  Sender: BAUSCH AND LOMB
  Company Number: US-BAUSCHBL-2025BNL031939

PATIENT
  Age: 73 Year
  Sex: Female

DRUGS (2)
  1. LATANOPROST [Suspect]
     Active Substance: LATANOPROST
     Indication: Product used for unknown indication
     Route: 047
  2. LATANOPROST [Suspect]
     Active Substance: LATANOPROST
     Route: 047

REACTIONS (6)
  - Pain [Unknown]
  - Product complaint [Unknown]
  - Therapy interrupted [Unknown]
  - Product closure removal difficult [Unknown]
  - Product delivery mechanism issue [Unknown]
  - Product use complaint [Unknown]
